FAERS Safety Report 12482069 (Version 1)
Quarter: 2016Q2

REPORT INFORMATION
  Report Type: Spontaneous
  Country: DE (occurrence: DE)
  Receive Date: 20160620
  Receipt Date: 20160620
  Transmission Date: 20160815
  Serious: Yes (Congenital Anomaly, Other)
  Sender: FDA-Public Use
  Company Number: GXKR2016DE002802

PATIENT

DRUGS (5)
  1. OLANZAPINE. [Suspect]
     Active Substance: OLANZAPINE
     Indication: SCHIZOPHRENIA
     Dosage: 10 [MG/D ]
     Route: 064
     Dates: start: 20141222, end: 20150908
  2. RISPERIDONE. [Suspect]
     Active Substance: RISPERIDONE
     Indication: SCHIZOPHRENIA
     Dosage: 1 [MG/D ]
     Route: 064
     Dates: start: 20141222, end: 20150908
  3. FOLIC ACID W/IODINE [Concomitant]
     Indication: PROPHYLAXIS OF NEURAL TUBE DEFECT
     Dosage: 0.4 [MG/D ] (GW 3.3 TO 37.1)
     Route: 064
  4. SERTRALINE [Suspect]
     Active Substance: SERTRALINE HYDROCHLORIDE
     Indication: SCHIZOPHRENIA
     Dosage: 50 [MG/D ]
     Route: 064
     Dates: start: 20150303, end: 20150908
  5. PAROXETINE. [Suspect]
     Active Substance: PAROXETINE
     Indication: SCHIZOPHRENIA
     Dosage: 40 [MG/D ]
     Route: 064
     Dates: start: 20141222, end: 20150302

REACTIONS (4)
  - Ventricular septal defect [Recovered/Resolved]
  - Small for dates baby [Recovering/Resolving]
  - Drug withdrawal syndrome neonatal [Recovered/Resolved]
  - Atrial septal defect [Unknown]

NARRATIVE: CASE EVENT DATE: 20150908
